FAERS Safety Report 4553182-5 (Version None)
Quarter: 2005Q1

REPORT INFORMATION
  Report Type: 
  Country: None (occurrence: None)
  Receive Date: 20050113
  Receipt Date: 20050104
  Transmission Date: 20050727
  Serious: No
  Sender: FDA-Public Use
  Company Number: 2005UW00138

PATIENT
  Age: 69 Year
  Sex: Female
  Weight: 65.77 kg

DRUGS (6)
  1. NEXIUM [Suspect]
     Indication: GASTROOESOPHAGEAL REFLUX DISEASE
     Dosage: 40 MG QD PO
     Route: 048
  2. SUDAFED 12 HOUR [Concomitant]
  3. VALIUM [Concomitant]
  4. PREMARIN [Concomitant]
  5. FOLIC ACID [Concomitant]
  6. ZANTAC [Concomitant]

REACTIONS (5)
  - CARDIAC DISORDER [None]
  - FEELING JITTERY [None]
  - MOVEMENT DISORDER [None]
  - NERVOUSNESS [None]
  - PALPITATIONS [None]
